FAERS Safety Report 6239141-5 (Version None)
Quarter: 2009Q2

REPORT INFORMATION
  Report Type: 
  Country: None (occurrence: None)
  Receive Date: 20090618
  Receipt Date: 20090618
  Transmission Date: 20091009
  Serious: Yes (Disabling)
  Sender: FDA-Public Use
  Company Number: None

PATIENT
  Age: 57 Year
  Sex: Female
  Weight: 127.0072 kg

DRUGS (1)
  1. ZICAM NASAL GEL [Suspect]
     Dosage: 2 SPRAYS DAILY NOSE FROM MID TO END OF 4-05
     Route: 045
     Dates: start: 20050401

REACTIONS (1)
  - ANOSMIA [None]
